FAERS Safety Report 25669449 (Version 1)
Quarter: 2025Q3

REPORT INFORMATION
  Report Type: Spontaneous
  Country: EU (occurrence: EU)
  Receive Date: 20250812
  Receipt Date: 20250812
  Transmission Date: 20251021
  Serious: Yes (Other)
  Sender: BAYER HEALTHCARE PHARMACEUTICALS INC.
  Company Number: EU-BAYER-2025A074340

PATIENT
  Age: 60 Year
  Sex: Male

DRUGS (2)
  1. FINERENONE [Suspect]
     Active Substance: FINERENONE
  2. FINERENONE [Suspect]
     Active Substance: FINERENONE
     Dates: start: 202504

REACTIONS (2)
  - Drug ineffective [None]
  - Urine albumin/creatinine ratio increased [None]
